FAERS Safety Report 9859259 (Version 2)
Quarter: 2014Q1

REPORT INFORMATION
  Report Type: Spontaneous
  Country: US (occurrence: US)
  Receive Date: 20140131
  Receipt Date: 20140131
  Transmission Date: 20141002
  Serious: No
  Sender: FDA-Public Use
  Company Number: US-GILEAD-2013-0067302

PATIENT
  Sex: Female
  Weight: 63.49 kg

DRUGS (6)
  1. CAYSTON [Suspect]
     Indication: PSEUDOMONAS BRONCHITIS
     Dosage: 75 MG, CYCLICAL
     Route: 055
     Dates: start: 20121229
  2. DEXILANT [Concomitant]
     Indication: GASTROOESOPHAGEAL REFLUX DISEASE
  3. FEXOFENADINE [Concomitant]
     Indication: RHINITIS ALLERGIC
  4. ZYFLO [Concomitant]
     Indication: ASTHMA
  5. CARAFATE [Concomitant]
     Indication: GASTROOESOPHAGEAL REFLUX DISEASE
  6. NACL [Concomitant]
     Indication: PRODUCT USED FOR UNKNOWN INDICATION

REACTIONS (1)
  - Bronchospasm [Unknown]
